FAERS Safety Report 4557553-2 (Version None)
Quarter: 2005Q1

REPORT INFORMATION
  Report Type: 
  Country: None (occurrence: None)
  Receive Date: 20050120
  Receipt Date: 20041028
  Transmission Date: 20050727
  Serious: Yes (Hospitalization)
  Sender: FDA-Public Use
  Company Number: JP-MERCK-0411USA01127

PATIENT
  Age: 32 Year
  Sex: Female

DRUGS (7)
  1. SINGULAIR [Suspect]
     Indication: ASTHMA
     Route: 048
     Dates: start: 20040901, end: 20041019
  2. THEO-DUR [Concomitant]
     Route: 048
     Dates: start: 20040901, end: 20041015
  3. MUCODYNE [Concomitant]
     Route: 048
     Dates: start: 20040901, end: 20041015
  4. EPRAZINONE HYDROCHLORIDE [Concomitant]
     Route: 048
     Dates: start: 20040901, end: 20041015
  5. ALESION [Concomitant]
     Route: 048
     Dates: start: 20040901, end: 20041019
  6. ALESION [Concomitant]
     Route: 048
     Dates: start: 20041001
  7. [THERAPY UNSPECIFIED] [Concomitant]
     Indication: WEIGHT CONTROL
     Route: 048
     Dates: start: 20040916, end: 20041013

REACTIONS (4)
  - EOSINOPHILIA [None]
  - ERYTHEMA [None]
  - PRURITUS [None]
  - SWELLING [None]
